FAERS Safety Report 9972863 (Version 1)
Quarter: 2014Q1

REPORT INFORMATION
  Report Type: Spontaneous
  Country: IN (occurrence: IN)
  Receive Date: 20140306
  Receipt Date: 20140306
  Transmission Date: 20141002
  Serious: Yes (Other)
  Sender: FDA-Public Use
  Company Number: IN-MYLANLABS-2014S1004493

PATIENT
  Age: 13 Year
  Sex: Female

DRUGS (1)
  1. LEVOFLOXACIN [Suspect]
     Indication: BRONCHITIS
     Dosage: 500 MG/DAY
     Route: 048

REACTIONS (8)
  - Delirium [Recovered/Resolved]
  - Psychotic disorder [Recovered/Resolved]
  - Mobility decreased [Recovered/Resolved]
  - Hyporesponsive to stimuli [Recovered/Resolved]
  - Neurotoxicity [Recovered/Resolved]
  - Tremor [Recovered/Resolved]
  - Vibratory sense increased [Recovered/Resolved]
  - Vomiting [Recovered/Resolved]
